FAERS Safety Report 13163403 (Version 1)
Quarter: 2017Q1

REPORT INFORMATION
  Report Type: Spontaneous
  Country: US (occurrence: US)
  Receive Date: 20170125
  Receipt Date: 20170125
  Transmission Date: 20170428
  Serious: Yes (Life-Threatening, Other)
  Sender: FDA-Public Use
  Company Number: None

PATIENT
  Age: 4 Day
  Sex: Female
  Weight: 63 kg

DRUGS (15)
  1. ZOMIG [Concomitant]
     Active Substance: ZOLMITRIPTAN
  2. ESTRADOIL [Concomitant]
  3. ASPIRIN. [Concomitant]
     Active Substance: ASPIRIN
  4. HYDROCODONE [Concomitant]
     Active Substance: HYDROCODONE
  5. VALIUM [Concomitant]
     Active Substance: DIAZEPAM
  6. ATENOLOL 25MG TABLET [Suspect]
     Active Substance: ATENOLOL
     Indication: MITRAL VALVE PROLAPSE
     Dosage: ?          QUANTITY:180 TABLET(S);?
     Route: 048
     Dates: start: 20161026, end: 20170122
  7. RANITIDINE. [Concomitant]
     Active Substance: RANITIDINE
  8. ATENOLOL 25MG TABLET [Suspect]
     Active Substance: ATENOLOL
     Indication: AORTIC VALVE PROLAPSE
     Dosage: ?          QUANTITY:180 TABLET(S);?
     Route: 048
     Dates: start: 20161026, end: 20170122
  9. EFFEXOR [Concomitant]
     Active Substance: VENLAFAXINE HYDROCHLORIDE
  10. EQUATE [Concomitant]
     Active Substance: UNSPECIFIED INGREDIENT
  11. STOOL SOFTENER (DOCUSATE CALCIUM) [Concomitant]
     Active Substance: DOCUSATE CALCIUM
  12. ATENOLOL 25MG TABLET [Suspect]
     Active Substance: ATENOLOL
     Indication: ARRHYTHMIA
     Dosage: ?          QUANTITY:180 TABLET(S);?
     Route: 048
     Dates: start: 20161026, end: 20170122
  13. DUCOSATE SODIUM AND SENNONIDES [Concomitant]
  14. VITAMIN D3 [Concomitant]
     Active Substance: CHOLECALCIFEROL
  15. LEVOTHYROXINE. [Concomitant]
     Active Substance: LEVOTHYROXINE

REACTIONS (4)
  - Syncope [None]
  - Heart rate irregular [None]
  - Dizziness [None]
  - Heart rate decreased [None]

NARRATIVE: CASE EVENT DATE: 20170122
